FAERS Safety Report 4486596-2 (Version None)
Quarter: 2004Q4

REPORT INFORMATION
  Report Type: 
  Country: None (occurrence: None)
  Receive Date: 20041027
  Receipt Date: 20040715
  Transmission Date: 20050328
  Serious: Yes (Hospitalization, Other)
  Sender: FDA-Public Use
  Company Number: PHNU2004DE02498

PATIENT
  Sex: Female

DRUGS (2)
  1. GLEEVEC [Suspect]
     Indication: CHRONIC MYELOID LEUKAEMIA
     Dosage: 400MG/DAY
     Route: 048
     Dates: start: 20020924
  2. GLEEVEC [Suspect]
     Dosage: 300MG/DAY
     Route: 048

REACTIONS (3)
  - COLITIS [None]
  - COLONIC STENOSIS [None]
  - DIARRHOEA [None]
